FAERS Safety Report 26024612 (Version 2)
Quarter: 2025Q4

REPORT INFORMATION
  Report Type: Spontaneous
  Country: EU (occurrence: EU)
  Receive Date: 20251111
  Receipt Date: 20251125
  Transmission Date: 20260117
  Serious: Yes (Other)
  Sender: TEVA
  Company Number: None

PATIENT
  Age: 36 Year
  Sex: Male
  Weight: 86 kg

DRUGS (1)
  1. AMOXICILLIN\CLAVULANIC ACID [Suspect]
     Active Substance: AMOXICILLIN\CLAVULANIC ACID
     Indication: Tonsillar inflammation
     Dosage: TAKE 1 TABLET TWICE DAILY. AMOXICILLIN/CLAVULANIC ACID 875/125
     Route: 048
     Dates: start: 20241213, end: 20241223

REACTIONS (1)
  - Clostridial infection [Recovered/Resolved]

NARRATIVE: CASE EVENT DATE: 20241227
